FAERS Safety Report 14919552 (Version 1)
Quarter: 2018Q2

REPORT INFORMATION
  Report Type: Spontaneous
  Country: US (occurrence: US)
  Receive Date: 20180502
  Receipt Date: 20180502
  Transmission Date: 20180711
  Serious: No
  Sender: FDA-Public Use
  Company Number: None

PATIENT
  Age: 8 Year
  Sex: Male
  Weight: 21.77 kg

DRUGS (2)
  1. STRATTERA [Suspect]
     Active Substance: ATOMOXETINE HYDROCHLORIDE
     Indication: ATTENTION DEFICIT/HYPERACTIVITY DISORDER
     Dosage: 1 CAPSULE/DAY - AFTER WAKING UP
     Dates: start: 20180207
  2. GUAIFACINE [Concomitant]

REACTIONS (8)
  - Impulsive behaviour [None]
  - Headache [None]
  - Pruritus [None]
  - Restlessness [None]
  - Psychomotor hyperactivity [None]
  - Irritability [None]
  - Aggression [None]
  - Agitation [None]

NARRATIVE: CASE EVENT DATE: 20180404
